FAERS Safety Report 6398469-9 (Version None)
Quarter: 2009Q4

REPORT INFORMATION
  Report Type: 
  Country: None (occurrence: None)
  Receive Date: 20091013
  Receipt Date: 20091007
  Transmission Date: 20100525
  Serious: Yes (Death)
  Sender: FDA-Public Use
  Company Number: A0811226A

PATIENT
  Sex: Female

DRUGS (3)
  1. SERETIDE [Suspect]
     Route: 055
     Dates: start: 20090201, end: 20090929
  2. SPIRIVA [Concomitant]
     Dates: start: 20090801, end: 20091005
  3. LOSARTAN POSTASSIUM [Concomitant]
     Dosage: 1TAB THREE TIMES PER DAY
     Route: 048
     Dates: start: 20090201, end: 20091005

REACTIONS (1)
  - CARDIOGENIC SHOCK [None]
